FAERS Safety Report 8419397-0 (Version None)
Quarter: 2012Q2

REPORT INFORMATION
  Report Type: 
  Country: None (occurrence: None)
  Receive Date: 20120607
  Receipt Date: 20120531
  Transmission Date: 20120825
  Serious: Yes (Hospitalization)
  Sender: FDA-Public Use
  Company Number: US-GLAXOSMITHKLINE-A0886567A

PATIENT
  Age: 51 Year
  Sex: Male

DRUGS (1)
  1. AVANDIA [Suspect]
     Indication: DIABETES MELLITUS
     Dosage: 8MG PER DAY
     Route: 048
     Dates: start: 20030724, end: 20080630

REACTIONS (8)
  - MITRAL VALVE INCOMPETENCE [None]
  - ISCHAEMIC CARDIOMYOPATHY [None]
  - RENAL FAILURE ACUTE [None]
  - ANEURYSM [None]
  - CORONARY ARTERY DISEASE [None]
  - PLEURAL EFFUSION [None]
  - ISCHAEMIC NEUROPATHY [None]
  - CARDIAC FAILURE CONGESTIVE [None]
